FAERS Safety Report 10146037 (Version 2)
Quarter: 2014Q2

REPORT INFORMATION
  Report Type: Spontaneous
  Country: IT (occurrence: IT)
  Receive Date: 20140501
  Receipt Date: 20140515
  Transmission Date: 20141212
  Serious: Yes (Life-Threatening, Hospitalization)
  Sender: FDA-Public Use
  Company Number: PHHY2014IT052733

PATIENT
  Age: 28 Year
  Sex: Female

DRUGS (2)
  1. TEGRETOL [Suspect]
     Dosage: 4400 MG, ONCE
     Route: 048
     Dates: start: 20130614, end: 20130614
  2. SEROQUEL [Suspect]
     Dosage: 1050 MG (2DF), ONCE
     Route: 048
     Dates: start: 20130614, end: 20130614

REACTIONS (3)
  - Intentional self-injury [Not Recovered/Not Resolved]
  - Drug abuse [Not Recovered/Not Resolved]
  - Psychomotor hyperactivity [Not Recovered/Not Resolved]
